FAERS Safety Report 9362985 (Version 5)
Quarter: 2013Q3

REPORT INFORMATION
  Report Type: Report from Study
  Country: CA (occurrence: CA)
  Receive Date: 20130624
  Receipt Date: 20130918
  Transmission Date: 20140515
  Serious: Yes (Death, Hospitalization, Other)
  Sender: FDA-Public Use
  Company Number: CA-ROCHE-1208556

PATIENT
  Age: 50 Year
  Sex: Male
  Weight: 93.9 kg

DRUGS (3)
  1. AVASTIN [Suspect]
     Indication: GLIOBLASTOMA
     Route: 042
     Dates: start: 20130313, end: 20130621
  2. DILANTIN [Concomitant]
  3. TYLENOL #3 (CANADA) [Concomitant]
     Dosage: 3PRN
     Route: 065

REACTIONS (11)
  - Death [Fatal]
  - Confusional state [Unknown]
  - Balance disorder [Unknown]
  - Disease progression [Unknown]
  - Diverticulitis [Not Recovered/Not Resolved]
  - Dyspepsia [Unknown]
  - Lethargy [Not Recovered/Not Resolved]
  - Haemoglobin decreased [Not Recovered/Not Resolved]
  - Haematocrit decreased [Unknown]
  - Red blood cell count decreased [Not Recovered/Not Resolved]
  - Monocyte count increased [Not Recovered/Not Resolved]
